FAERS Safety Report 13913667 (Version 1)
Quarter: 2017Q3

REPORT INFORMATION
  Report Type: Spontaneous
  Country: US (occurrence: US)
  Receive Date: 20170828
  Receipt Date: 20170828
  Transmission Date: 20171127
  Serious: No
  Sender: FDA-Public Use
  Company Number: US-ROCHE-1138122

PATIENT
  Sex: Male

DRUGS (4)
  1. AMOXICILLIN. [Concomitant]
     Active Substance: AMOXICILLIN
  2. TOFRANIL [Concomitant]
     Active Substance: IMIPRAMINE HYDROCHLORIDE
     Route: 065
  3. NUTROPIN [Suspect]
     Active Substance: SOMATROPIN
     Indication: GROWTH HORMONE DEFICIENCY
     Dosage: 0.31 U/KG/WK
     Route: 058
  4. NUTROPIN [Suspect]
     Active Substance: SOMATROPIN
     Dosage: 0.3 MG/KG/WEEK
     Route: 058

REACTIONS (4)
  - Dry skin [Unknown]
  - Sinusitis [Unknown]
  - Acne [Unknown]
  - Asthenia [Unknown]
